FAERS Safety Report 4888381-6 (Version None)
Quarter: 2006Q1

REPORT INFORMATION
  Report Type: 
  Country: None (occurrence: None)
  Receive Date: 20060119
  Receipt Date: 20060119
  Transmission Date: 20060701
  Serious: No
  Sender: FDA-Public Use
  Company Number: None

PATIENT
  Age: 6 Year
  Sex: Female

DRUGS (2)
  1. AUGMENTIN '250' [Suspect]
     Dosage: SUSPENSION
  2. AMOXIL [Suspect]
     Dosage: SUSPENSION

REACTIONS (1)
  - MEDICATION ERROR [None]
